FAERS Safety Report 7226521-4 (Version None)
Quarter: 2011Q1

REPORT INFORMATION
  Report Type: 
  Country: None (occurrence: None)
  Receive Date: 20110114
  Receipt Date: 20110105
  Transmission Date: 20110831
  Serious: Yes (Hospitalization, Other)
  Sender: FDA-Public Use
  Company Number: US-JNJFOC-20110101068

PATIENT
  Sex: Female
  Weight: 86.18 kg

DRUGS (7)
  1. DURAGESIC-50 [Suspect]
     Route: 062
  2. LEXAPRO [Concomitant]
     Indication: DEPRESSION
     Route: 048
  3. DURAGESIC-50 [Suspect]
     Route: 062
  4. THYROID PREPARATIONS [Concomitant]
     Indication: THYROID DISORDER
     Route: 048
  5. LEXAPRO [Concomitant]
     Indication: ANXIETY
     Route: 048
  6. NEXIUM [Concomitant]
     Indication: GASTROOESOPHAGEAL REFLUX DISEASE
     Route: 048
  7. DURAGESIC-50 [Suspect]
     Indication: PAIN
     Route: 062

REACTIONS (7)
  - APPLICATION SITE PAIN [None]
  - DRUG ADMINISTERED AT INAPPROPRIATE SITE [None]
  - APPLICATION SITE PRURITUS [None]
  - EXPIRED DRUG ADMINISTERED [None]
  - APPLICATION SITE ERYTHEMA [None]
  - LYME DISEASE [None]
  - MEMORY IMPAIRMENT [None]
